FAERS Safety Report 18508922 (Version 3)
Quarter: 2021Q1

REPORT INFORMATION
  Report Type: Spontaneous
  Country: US (occurrence: US)
  Receive Date: 20201117
  Receipt Date: 20210317
  Transmission Date: 20210419
  Serious: No
  Sender: FDA-Public Use
  Company Number: US-SA-2020SA317293

PATIENT
  Age: 74 Year
  Sex: Female

DRUGS (1)
  1. SOLIQUA 100/33 [Suspect]
     Active Substance: INSULIN GLARGINE\LIXISENATIDE
     Indication: TYPE 2 DIABETES MELLITUS
     Dosage: 60 IU, QD
     Route: 065
     Dates: start: 2015

REACTIONS (1)
  - Blood glucose increased [Unknown]

NARRATIVE: CASE EVENT DATE: 20201110
